FAERS Safety Report 25268733 (Version 1)
Quarter: 2025Q2

REPORT INFORMATION
  Report Type: Spontaneous
  Country: US (occurrence: US)
  Receive Date: 20250505
  Receipt Date: 20250505
  Transmission Date: 20250717
  Serious: Yes (Hospitalization, Other)
  Sender: CSL BEHRING
  Company Number: US-BEH-2025203696

PATIENT
  Age: 48 Year
  Sex: Female
  Weight: 106.5 kg

DRUGS (1)
  1. MIRCERA [Suspect]
     Active Substance: METHOXY POLYETHYLENE GLYCOL-EPOETIN BETA
     Indication: Anaemia
     Dosage: 75 ?G, QOW(EVERY 2 WEEKS)
     Route: 040
     Dates: start: 20250125, end: 20250403

REACTIONS (2)
  - Feeling hot [Unknown]
  - Urticaria [Unknown]

NARRATIVE: CASE EVENT DATE: 20250403
